FAERS Safety Report 15675846 (Version 1)
Quarter: 2018Q4

REPORT INFORMATION
  Report Type: Spontaneous
  Country: US (occurrence: US)
  Receive Date: 20181129
  Receipt Date: 20181129
  Transmission Date: 20190205
  Serious: Yes (Death)
  Sender: FDA-Public Use
  Company Number: None

PATIENT
  Age: 61 Year
  Sex: Female

DRUGS (2)
  1. ONDANSETRON [Suspect]
     Active Substance: ONDANSETRON
     Indication: HEPATOBILIARY CANCER
  2. PROCRIT [Suspect]
     Active Substance: ERYTHROPOIETIN
     Indication: HEPATOBILIARY CANCER
     Route: 058

REACTIONS (1)
  - Death [None]
